FAERS Safety Report 9805311 (Version 1)
Quarter: 2014Q1

REPORT INFORMATION
  Report Type: Spontaneous
  Country: US (occurrence: None)
  Receive Date: 20140108
  Receipt Date: 20140108
  Transmission Date: 20141002
  Serious: Yes (Disabling)
  Sender: FDA-Public Use
  Company Number: None

PATIENT
  Age: 61 Year
  Sex: Female
  Weight: 101.61 kg

DRUGS (3)
  1. LEVOFLOXACIN 500 MG TABLETS [Suspect]
     Indication: BRONCHITIS
     Dosage: 1 DAILY, 10 DAYS
     Route: 048
     Dates: end: 20140101
  2. TOPROL XR [Concomitant]
  3. CINNIMOV [Concomitant]

REACTIONS (7)
  - Tendon pain [None]
  - Pain in extremity [None]
  - Musculoskeletal pain [None]
  - Gait disturbance [None]
  - Oedema peripheral [None]
  - Local swelling [None]
  - Chondropathy [None]
